FAERS Safety Report 25593528 (Version 1)
Quarter: 2025Q3

REPORT INFORMATION
  Report Type: Report from Study
  Country: MX (occurrence: MX)
  Receive Date: 20250722
  Receipt Date: 20250722
  Transmission Date: 20251021
  Serious: Yes (Disabling)
  Sender: ABBVIE
  Company Number: MX-ABBVIE-6381098

PATIENT
  Age: 78 Year
  Sex: Female

DRUGS (2)
  1. OZURDEX [Suspect]
     Active Substance: DEXAMETHASONE
     Indication: Macular oedema
     Route: 050
     Dates: start: 202402
  2. DEFLAZACORT [Concomitant]
     Active Substance: DEFLAZACORT
     Indication: Rheumatoid arthritis
     Dates: start: 1995

REACTIONS (4)
  - Visual impairment [Unknown]
  - Eye inflammation [Unknown]
  - Pancreatic disorder [Unknown]
  - Retinitis [Unknown]

NARRATIVE: CASE EVENT DATE: 20250709
